FAERS Safety Report 5662473-6 (Version None)
Quarter: 2008Q1

REPORT INFORMATION
  Report Type: 
  Country: None (occurrence: None)
  Receive Date: 20080310
  Receipt Date: 20080310
  Transmission Date: 20080703
  Serious: Yes (Hospitalization)
  Sender: FDA-Public Use
  Company Number: None

PATIENT
  Age: 32 Year
  Sex: Male
  Weight: 81.2 kg

DRUGS (7)
  1. PACLITAXEL [Suspect]
     Indication: GERM CELL CANCER
     Dosage: 170 MG/M2 Q 2 WEEKS IV
     Route: 042
     Dates: start: 20080208, end: 20080226
  2. GEMCITABINE [Suspect]
     Indication: GERM CELL CANCER
     Dosage: 800 MG/M2 Q2 WEEKS IV
     Route: 042
     Dates: start: 20080208, end: 20080226
  3. OXALIPLATIN [Suspect]
     Indication: GERM CELL CANCER
     Dosage: 125 MG/M2 Q 2 WEEKS IV
     Route: 042
     Dates: start: 20080208, end: 20080226
  4. MS CONTIN [Concomitant]
  5. DILAUDID [Concomitant]
  6. COLACE [Concomitant]
  7. ZOFRAN [Concomitant]

REACTIONS (3)
  - BACK PAIN [None]
  - INADEQUATE ANALGESIA [None]
  - RECURRENT CANCER [None]
